FAERS Safety Report 24717085 (Version 1)
Quarter: 2024Q4

REPORT INFORMATION
  Report Type: Spontaneous
  Country: PK (occurrence: PK)
  Receive Date: 20241210
  Receipt Date: 20241210
  Transmission Date: 20250115
  Serious: Yes (Other)
  Sender: NOVARTIS
  Company Number: PK-002147023-NVSC2024PK233065

PATIENT

DRUGS (1)
  1. CYCLOSPORINE [Suspect]
     Active Substance: CYCLOSPORINE
     Indication: Aplastic anaemia
     Route: 065

REACTIONS (3)
  - Posterior reversible encephalopathy syndrome [Unknown]
  - Therapy partial responder [Unknown]
  - Product use in unapproved indication [Unknown]
